FAERS Safety Report 7024115-7 (Version None)
Quarter: 2010Q3

REPORT INFORMATION
  Report Type: 
  Country: None (occurrence: None)
  Receive Date: 20100929
  Receipt Date: 20100920
  Transmission Date: 20110219
  Serious: Yes (Hospitalization)
  Sender: FDA-Public Use
  Company Number: 2010MA002881

PATIENT
  Age: 44 Year
  Sex: Male

DRUGS (7)
  1. TRIAMCINOLONE ACETONIDE [Suspect]
     Indication: ARTHRALGIA
     Dosage: 80 MG; X1
     Dates: start: 20081101
  2. TRIAMCINOLONE ACETONIDE [Suspect]
     Indication: OSTEOARTHRITIS
     Dosage: 80 MG; X1
     Dates: start: 20081101
  3. RITONAVIR [Suspect]
     Indication: HIV INFECTION CDC GROUP I
     Dosage: 100 MG; QD
     Dates: start: 20040101
  4. CON MEDS [Concomitant]
  5. METHYLPREDNISOLONE [Concomitant]
  6. ACETATE (PREV) [Concomitant]
  7. GLIMEPIRIDE (PREV.) [Concomitant]

REACTIONS (9)
  - ADRENAL SUPPRESSION [None]
  - ARTHRALGIA [None]
  - BLOOD OSMOLARITY INCREASED [None]
  - BURSITIS [None]
  - FATIGUE [None]
  - HYPERGLYCAEMIA [None]
  - MALAISE [None]
  - TYPE 2 DIABETES MELLITUS [None]
  - WEIGHT DECREASED [None]
